FAERS Safety Report 7908054-2 (Version None)
Quarter: 2011Q4

REPORT INFORMATION
  Report Type: 
  Country: None (occurrence: None)
  Receive Date: 20111110
  Receipt Date: 20111102
  Transmission Date: 20120403
  Serious: Yes (Hospitalization)
  Sender: FDA-Public Use
  Company Number: AU-B.I. PHARMACEUTICALS,INC./RIDGEFIELD-2011-BP-25511YA

PATIENT
  Sex: Male

DRUGS (1)
  1. TAMSULOSIN HCL [Suspect]
     Indication: DYSURIA
     Route: 048
     Dates: start: 20110921, end: 20111019

REACTIONS (7)
  - LIP SWELLING [None]
  - PRURITUS [None]
  - RASH [None]
  - OEDEMA PERIPHERAL [None]
  - SWOLLEN TONGUE [None]
  - GENITAL SWELLING [None]
  - PRURITUS GENITAL [None]
